FAERS Safety Report 7040850-9 (Version None)
Quarter: 2010Q4

REPORT INFORMATION
  Report Type: 
  Country: None (occurrence: None)
  Receive Date: 20101013
  Receipt Date: 20101011
  Transmission Date: 20110411
  Serious: Yes (Other)
  Sender: FDA-Public Use
  Company Number: US-SP-2003-00647

PATIENT
  Sex: Female

DRUGS (3)
  1. TUBERSOL [Suspect]
     Indication: TUBERCULIN TEST
     Route: 030
     Dates: start: 20030127, end: 20030127
  2. ENGERIX-B [Suspect]
     Indication: IMMUNISATION
     Route: 030
     Dates: start: 20030203, end: 20030203
  3. SKELAXIN [Concomitant]

REACTIONS (18)
  - BACK PAIN [None]
  - BLISTER [None]
  - CHILLS [None]
  - DIARRHOEA [None]
  - HEADACHE [None]
  - HEART RATE INCREASED [None]
  - HYPERTENSION [None]
  - LIMB DISCOMFORT [None]
  - MEDICATION ERROR [None]
  - MUSCULOSKELETAL PAIN [None]
  - NAUSEA [None]
  - OEDEMA PERIPHERAL [None]
  - PARAESTHESIA [None]
  - PYREXIA [None]
  - SKIN EXFOLIATION [None]
  - VERTIGO [None]
  - VISION BLURRED [None]
  - VOMITING [None]
